FAERS Safety Report 8924780 (Version 1)
Quarter: 2012Q4

REPORT INFORMATION
  Report Type: 
  Country: US (occurrence: US)
  Receive Date: 20121126
  Receipt Date: 20121126
  Transmission Date: 20130627
  Serious: No
  Sender: FDA-Public Use
  Company Number: US-PFIZER INC-2012293024

PATIENT
  Age: 38 Year
  Sex: Female
  Weight: 131 kg

DRUGS (5)
  1. PRISTIQ [Suspect]
     Indication: DEPRESSION
     Dosage: 50 mg, daily
     Dates: start: 20120611, end: 20120722
  2. PRISTIQ [Suspect]
     Dosage: 100 mg, daily
     Dates: start: 20120723
  3. LEVOTHYROXINE [Concomitant]
     Indication: THYROID DISORDER
     Dosage: 50 mg, daily
  4. ALBUTEROL [Concomitant]
     Indication: ASTHMA
     Dosage: two puffs every four to six hours as needed
  5. ASMANEX [Concomitant]
     Indication: ASTHMA
     Dosage: one puff two times a day

REACTIONS (3)
  - Hypersensitivity [Recovered/Resolved]
  - Swelling face [Recovered/Resolved]
  - Headache [Recovered/Resolved]
